FAERS Safety Report 4436720-2 (Version None)
Quarter: 2004Q3

REPORT INFORMATION
  Report Type: 
  Country: None (occurrence: None)
  Receive Date: 20040728
  Receipt Date: 20031023
  Transmission Date: 20050211
  Serious: Yes (Life-Threatening, Hospitalization)
  Sender: FDA-Public Use
  Company Number: 202719

PATIENT
  Age: 58 Year
  Sex: Male

DRUGS (8)
  1. RITUXAN [Suspect]
     Indication: NON-HODGKIN'S LYMPHOMA
     Dosage: INTRAVENOUS
     Route: 042
     Dates: start: 20030818, end: 20030818
  2. CELEBREX [Concomitant]
  3. VICODIN ES (ACETAMINOPHEN, HYDROCODONE BITARTRATE) [Concomitant]
  4. PAXIL [Concomitant]
  5. VITAMIN C (ASCORBIC ACID) [Concomitant]
  6. COMPAZINE [Concomitant]
  7. TYLENOL [Concomitant]
  8. FLEXERIL [Concomitant]

REACTIONS (1)
  - INFUSION RELATED REACTION [None]
